FAERS Safety Report 24631065 (Version 1)
Quarter: 2024Q4

REPORT INFORMATION
  Report Type: Spontaneous
  Country: US (occurrence: None)
  Receive Date: 20241117
  Receipt Date: 20241117
  Transmission Date: 20250115
  Serious: No
  Sender: Public
  Company Number: None

PATIENT
  Age: 31 Year
  Sex: Female

DRUGS (1)
  1. DEXTROAMPHETAMINE SACCHARATE, AMPHETAMINE ASPARTATE, DEXTROAMPHETAMINE [Suspect]
     Active Substance: AMPHETAMINE ASPARTATE\AMPHETAMINE SULFATE\DEXTROAMPHETAMINE SACCHARATE\DEXTROAMPHETAMINE SULFATE
     Indication: Attention deficit hyperactivity disorder
     Dosage: 30 TABLETS
     Dates: start: 20241112, end: 20241117

REACTIONS (3)
  - Fatigue [None]
  - Nausea [None]
  - Drug ineffective [None]
